FAERS Safety Report 6071159-8 (Version None)
Quarter: 2009Q1

REPORT INFORMATION
  Report Type: 
  Country: None (occurrence: None)
  Receive Date: 20090209
  Receipt Date: 20090129
  Transmission Date: 20090719
  Serious: Yes (Hospitalization, Other)
  Sender: FDA-Public Use
  Company Number: US-ELI_LILLY_AND_COMPANY-US200809002669

PATIENT
  Age: 76 Year
  Sex: Female

DRUGS (8)
  1. EVISTA [Suspect]
     Dosage: UNK, UNKNOWN
     Route: 065
     Dates: start: 20000101
  2. LISINOPRIL [Concomitant]
     Dosage: 20 MG, DAILY (1/D)
     Route: 065
  3. DYAZIDE [Concomitant]
     Dosage: UNK, QOD
     Route: 065
  4. ASPIRIN [Concomitant]
     Dosage: UNK, UNKNOWN
     Route: 065
  5. ASPIRIN [Concomitant]
     Dosage: UNK, DAILY (1/D)
     Route: 065
  6. CRESTOR [Concomitant]
     Dosage: 10 MG, DAILY (1/D)
     Route: 065
  7. COMBIVENT [Concomitant]
     Dosage: UNK, UNKNOWN
     Route: 055
  8. COMBIVENT [Concomitant]
     Dosage: UNK, 4/D
     Route: 055

REACTIONS (2)
  - COLITIS ISCHAEMIC [None]
  - TYPE 2 DIABETES MELLITUS [None]
